FAERS Safety Report 23461090 (Version 1)
Quarter: 2024Q1

REPORT INFORMATION
  Report Type: Spontaneous
  Country: IT (occurrence: IT)
  Receive Date: 20240131
  Receipt Date: 20240131
  Transmission Date: 20240410
  Serious: Yes (Other)
  Sender: FDA-Public Use
  Company Number: IT-009507513-2401ITA016176

PATIENT
  Sex: Male

DRUGS (2)
  1. DORAVIRINE [Suspect]
     Active Substance: DORAVIRINE
     Indication: HIV infection
     Dosage: 100 MILLIGRAM, BID
     Route: 048
  2. DORAVIRINE [Suspect]
     Active Substance: DORAVIRINE
     Dosage: 100 MILLIGRAM, QD
     Route: 048

REACTIONS (2)
  - Hepatotoxicity [Unknown]
  - Hypertransaminasaemia [Recovered/Resolved]
